FAERS Safety Report 7733229-5 (Version None)
Quarter: 2011Q3

REPORT INFORMATION
  Report Type: 
  Country: None (occurrence: None)
  Receive Date: 20110907
  Receipt Date: 20100326
  Transmission Date: 20111222
  Serious: No
  Sender: FDA-Public Use
  Company Number: US-BAYER-201017952NA

PATIENT
  Age: 31 Year
  Sex: Female

DRUGS (1)
  1. MIRENA [Suspect]
     Indication: CONTRACEPTION
     Dosage: UNK
     Dates: start: 20060801, end: 20100326

REACTIONS (5)
  - WEIGHT INCREASED [None]
  - MENSTRUATION IRREGULAR [None]
  - ABDOMINAL PAIN LOWER [None]
  - ACNE [None]
  - VAGINAL DISCHARGE [None]
